FAERS Safety Report 5581804-9 (Version None)
Quarter: 2008Q1

REPORT INFORMATION
  Report Type: 
  Country: None (occurrence: None)
  Receive Date: 20080104
  Receipt Date: 20071231
  Transmission Date: 20080703
  Serious: Yes (Hospitalization)
  Sender: FDA-Public Use
  Company Number: AU-PFIZER INC-2007106015

PATIENT
  Sex: Male

DRUGS (2)
  1. SUTENT [Suspect]
     Indication: METASTATIC RENAL CELL CARCINOMA
     Route: 048
     Dates: start: 20071204, end: 20071212
  2. ZOLADEX [Concomitant]

REACTIONS (3)
  - DIARRHOEA [None]
  - JOINT SWELLING [None]
  - SWELLING FACE [None]
